FAERS Safety Report 13032331 (Version 1)
Quarter: 2016Q4

REPORT INFORMATION
  Report Type: Spontaneous
  Country: IT (occurrence: IT)
  Receive Date: 20161215
  Receipt Date: 20161215
  Transmission Date: 20170207
  Serious: Yes (Hospitalization)
  Sender: FDA-Public Use
  Company Number: IT-TEVA-718888ACC

PATIENT
  Sex: Male

DRUGS (1)
  1. BICALUTAMIDE TEVA - 50 MG COMPRESSE RIVESTITE CON FILM - TEVA ITALIA S [Suspect]
     Active Substance: BICALUTAMIDE
     Indication: PROSTATE CANCER
     Dosage: 50 MILLIGRAM DAILY;
     Route: 048

REACTIONS (1)
  - Facial paresis [Unknown]

NARRATIVE: CASE EVENT DATE: 20161129
